FAERS Safety Report 17297015 (Version 1)
Quarter: 2020Q1

REPORT INFORMATION
  Report Type: Report from Study
  Country: US (occurrence: US)
  Receive Date: 20200121
  Receipt Date: 20200121
  Transmission Date: 20200409
  Serious: Yes (Hospitalization, Other)
  Sender: FDA-Public Use
  Company Number: US-MYLANLABS-2020M1005867

PATIENT
  Age: 2 Year
  Sex: Male
  Weight: 11.2 kg

DRUGS (7)
  1. CAMPTOSAR [Suspect]
     Active Substance: IRINOTECAN HYDROCHLORIDE
     Indication: PRODUCT USED FOR UNKNOWN INDICATION
     Dosage: UNK UNK, CYCLE
     Route: 042
     Dates: start: 20190923
  2. DACTINOMYCIN [Suspect]
     Active Substance: DACTINOMYCIN
     Dosage: PER DOSING TABLE IV OVER 1-5 MINUTES ON DAY 1UNK
     Route: 042
  3. CYCLOPHOSPHAMIDE. [Suspect]
     Active Substance: CYCLOPHOSPHAMIDE
     Indication: PRODUCT USED FOR UNKNOWN INDICATION
     Dosage: OVER 60, MINUTES ON DAY 1 OF CYCLES 5
     Route: 042
     Dates: start: 20190923
  4. TEMSIROLIMUS. [Suspect]
     Active Substance: TEMSIROLIMUS
     Indication: PRODUCT USED FOR UNKNOWN INDICATION
     Dosage: 15 MILLIGRAM/SQ. METER, CYCLE
     Route: 042
     Dates: start: 20190923
  5. DACTINOMYCIN [Suspect]
     Active Substance: DACTINOMYCIN
     Indication: PRODUCT USED FOR UNKNOWN INDICATION
     Dosage: UNK UNK, CYCLE
     Route: 042
     Dates: start: 20190923
  6. VINCRISTINE SULFATE. [Suspect]
     Active Substance: VINCRISTINE SULFATE
     Indication: PRODUCT USED FOR UNKNOWN INDICATION
     Dosage: OVER 1 MINUTE OR INFUSION VIA MINIBAG
     Route: 042
     Dates: start: 20190923
  7. CYCLOPHOSPHAMIDE. [Suspect]
     Active Substance: CYCLOPHOSPHAMIDE
     Dosage: PER DOSING TABLE IV OVER 60 MINUTES ON DAY 1 OF CYCLES UNK
     Route: 042

REACTIONS (1)
  - Urinary tract obstruction [Not Recovered/Not Resolved]

NARRATIVE: CASE EVENT DATE: 20191219
